FAERS Safety Report 7541520-0 (Version None)
Quarter: 2011Q2

REPORT INFORMATION
  Report Type: 
  Country: None (occurrence: None)
  Receive Date: 20110613
  Receipt Date: 20110606
  Transmission Date: 20111010
  Serious: Yes (Life-Threatening)
  Sender: FDA-Public Use
  Company Number: US-BRISTOL-MYERS SQUIBB COMPANY-15609050

PATIENT
  Sex: Female

DRUGS (1)
  1. AVALIDE [Suspect]
     Indication: HYPERTENSION
     Dosage: 1DF=300/25MG

REACTIONS (3)
  - BLOOD PRESSURE INCREASED [None]
  - VISUAL IMPAIRMENT [None]
  - BLOOD POTASSIUM INCREASED [None]
